FAERS Safety Report 4954379-2 (Version None)
Quarter: 2006Q1

REPORT INFORMATION
  Report Type: 
  Country: None (occurrence: None)
  Receive Date: 20060322
  Receipt Date: 20060310
  Transmission Date: 20060701
  Serious: Yes (Hospitalization)
  Sender: FDA-Public Use
  Company Number: 2005JP002168

PATIENT
  Age: 63 Year
  Sex: Female
  Weight: 41 kg

DRUGS (8)
  1. PROGRAF [Suspect]
     Indication: LIVER TRANSPLANT
     Dosage: 1.5 MG, BID, OTHER
     Route: 050
     Dates: start: 20040928, end: 20041215
  2. URSO (URSODEOXYCHOLIC ACID) POWDER [Concomitant]
  3. TAURINE (TAURINE) POWDER [Concomitant]
  4. MYA-BM (CLOSTRIDIUM BUTYRICUM) POWDER [Concomitant]
  5. ENTERONON R (STREPTOCOCCUS FAECALIS, LACTOBACILLUS LACTIS, LACTOBACILL [Concomitant]
  6. MEDROL (METHYLPREDNISOLONE) POWDER [Concomitant]
  7. GASTER POWDER [Concomitant]
  8. BAKTAR (SULFAMETHOXAZOLE, TRIMETHOPRIM) POWDER [Concomitant]

REACTIONS (3)
  - OESOPHAGEAL VARICES HAEMORRHAGE [None]
  - PORTAL HYPERTENSION [None]
  - RENAL IMPAIRMENT [None]
